FAERS Safety Report 7682507-7 (Version None)
Quarter: 2011Q3

REPORT INFORMATION
  Report Type: 
  Country: None (occurrence: None)
  Receive Date: 20110815
  Receipt Date: 20110801
  Transmission Date: 20111222
  Serious: Yes (Other)
  Sender: FDA-Public Use
  Company Number: PHHY2011JP68006

PATIENT
  Age: 25 Year
  Sex: Male

DRUGS (6)
  1. CLONAZEPAM [Concomitant]
  2. CARBAMAZEPINE [Suspect]
     Indication: CONVULSION
     Dosage: UNK UKN, UNK
  3. PHENOBARBITAL TAB [Concomitant]
  4. PHENYTOIN SODIUM CAP [Concomitant]
     Dosage: UNK UKN, UNK
  5. ETHOSUXIMIDE [Concomitant]
  6. LAMOTRIGINE [Concomitant]
     Dosage: 200 MG, DAILY

REACTIONS (1)
  - PARTIAL SEIZURES WITH SECONDARY GENERALISATION [None]
